FAERS Safety Report 11124528 (Version 1)
Quarter: 2015Q2

REPORT INFORMATION
  Report Type: Spontaneous
  Country: US (occurrence: None)
  Receive Date: 20150519
  Receipt Date: 20150519
  Transmission Date: 20150821
  Serious: No
  Sender: FDA-Public Use
  Company Number: None

PATIENT
  Age: 72 Year
  Sex: Male
  Weight: 90.72 kg

DRUGS (8)
  1. SIMVASTATIN. [Concomitant]
     Active Substance: SIMVASTATIN
  2. OMEPRAZOLE. [Concomitant]
     Active Substance: OMEPRAZOLE
  3. LATANAPROST [Concomitant]
  4. LO-DOSE ASPIRIN [Concomitant]
  5. VITAMIN D [Concomitant]
     Active Substance: CHOLECALCIFEROL
  6. MULTI-VITAMIN FOR SENIORS [Concomitant]
  7. CITALOPRAM [Suspect]
     Active Substance: CITALOPRAM HYDROBROMIDE
     Indication: DEPRESSION
     Dosage: (1)  20MG TABLET DAILY  ONCE DAILY TAKEN BY MOUTH
     Route: 048
     Dates: start: 20150331, end: 20150501
  8. RETINAVITES [Concomitant]

REACTIONS (7)
  - Product substitution issue [None]
  - Dissociation [None]
  - Headache [None]
  - Dizziness [None]
  - Balance disorder [None]
  - Paraesthesia oral [None]
  - Product quality issue [None]

NARRATIVE: CASE EVENT DATE: 20150406
